FAERS Safety Report 5694969-5 (Version None)
Quarter: 2008Q2

REPORT INFORMATION
  Report Type: 
  Country: None (occurrence: None)
  Receive Date: 20080404
  Receipt Date: 20080325
  Transmission Date: 20081010
  Serious: Yes (Hospitalization)
  Sender: FDA-Public Use
  Company Number: US-JNJFOC-20080306253

PATIENT
  Age: 48 Year
  Sex: Female

DRUGS (1)
  1. CHLORZOXAZONE [Suspect]
     Indication: MUSCULOSKELETAL PAIN
     Route: 065

REACTIONS (1)
  - ACUTE HEPATIC FAILURE [None]
